FAERS Safety Report 4764230-1 (Version None)
Quarter: 2005Q3

REPORT INFORMATION
  Report Type: 
  Country: None (occurrence: None)
  Receive Date: 20050907
  Receipt Date: 20050907
  Transmission Date: 20060218
  Serious: Yes (Other)
  Sender: FDA-Public Use
  Company Number: None

PATIENT
  Age: 32 Year
  Sex: Female
  Weight: 56.6996 kg

DRUGS (3)
  1. PAXIL [Suspect]
     Indication: PANIC ATTACK
     Dosage: TAPERED 20MG-10MG-5MG SPAIN OF TWO PO
     Route: 048
     Dates: start: 20020401, end: 20050625
  2. ACIPHEX [Concomitant]
  3. CENTRUM VITAMINS [Concomitant]

REACTIONS (10)
  - DIZZINESS [None]
  - DYSSTASIA [None]
  - HEADACHE [None]
  - HYPERHIDROSIS [None]
  - IMPAIRED WORK ABILITY [None]
  - NAUSEA [None]
  - PARAESTHESIA [None]
  - SOMNOLENCE [None]
  - STRESS [None]
  - TREMOR [None]
